FAERS Safety Report 20506344 (Version 1)
Quarter: 2022Q1

REPORT INFORMATION
  Report Type: Spontaneous
  Country: US (occurrence: None)
  Receive Date: 20220223
  Receipt Date: 20220223
  Transmission Date: 20220423
  Serious: Yes (Death, Hospitalization)
  Sender: FDA-Public Use
  Company Number: None

PATIENT
  Age: 57 Year
  Sex: Female
  Weight: 50.3 kg

DRUGS (4)
  1. ACALABRUTINIB [Suspect]
     Active Substance: ACALABRUTINIB
     Dates: end: 20210812
  2. BENDAMUSTINE HYDROCHLORIDE [Suspect]
     Active Substance: BENDAMUSTINE HYDROCHLORIDE
     Dates: end: 20210402
  3. CYTARABINE [Suspect]
     Active Substance: CYTARABINE
     Dates: end: 20210709
  4. RITUXIMAB [Suspect]
     Active Substance: RITUXIMAB
     Dates: end: 20210708

REACTIONS (11)
  - Tachycardia [None]
  - Pneumonia [None]
  - Subarachnoid haemorrhage [None]
  - Enterovirus infection [None]
  - Mental status changes [None]
  - Arthralgia [None]
  - Fatigue [None]
  - Acute myocardial infarction [None]
  - Platelet count decreased [None]
  - Hypotension [None]
  - Haemoglobin decreased [None]

NARRATIVE: CASE EVENT DATE: 20220205
